FAERS Safety Report 6908841-3 (Version None)
Quarter: 2010Q3

REPORT INFORMATION
  Report Type: 
  Country: None (occurrence: None)
  Receive Date: 20100805
  Receipt Date: 20100803
  Transmission Date: 20110219
  Serious: Yes (Hospitalization)
  Sender: FDA-Public Use
  Company Number: B0664333A

PATIENT
  Sex: Female
  Weight: 52 kg

DRUGS (7)
  1. ARIXTRA [Suspect]
     Indication: THROMBOSIS PROPHYLAXIS
     Route: 058
     Dates: start: 20100507, end: 20100517
  2. OFLOCET [Suspect]
     Indication: BACTERIAL SEPSIS
     Dosage: 200MG TWICE PER DAY
     Route: 048
     Dates: start: 20100511, end: 20100526
  3. ROCEPHIN [Suspect]
     Indication: BACTERIAL SEPSIS
     Route: 042
     Dates: start: 20100507, end: 20100517
  4. AMIKIN [Suspect]
     Indication: BACTERIAL SEPSIS
     Dosage: 500MG PER DAY
     Route: 042
     Dates: start: 20100507, end: 20100508
  5. LEVOFLOXACIN [Suspect]
     Indication: BACTERIAL SEPSIS
     Route: 042
     Dates: start: 20100507, end: 20100509
  6. TAHOR [Concomitant]
     Indication: PRODUCT USED FOR UNKNOWN INDICATION
     Route: 065
     Dates: end: 20100513
  7. HYDROCORTISONE [Concomitant]
     Indication: PRODUCT USED FOR UNKNOWN INDICATION
     Route: 065

REACTIONS (1)
  - AGRANULOCYTOSIS [None]
